FAERS Safety Report 7476245-3 (Version None)
Quarter: 2011Q2

REPORT INFORMATION
  Report Type: 
  Country: None (occurrence: None)
  Receive Date: 20110510
  Receipt Date: 20110510
  Transmission Date: 20111010
  Serious: No
  Sender: FDA-Public Use
  Company Number: None

PATIENT
  Sex: Male

DRUGS (1)
  1. AZATHIOPRINE [Suspect]
     Indication: TRANSPLANT
     Dosage: 125MG ONCE DAILY ORAL
     Route: 048
     Dates: start: 20091005

REACTIONS (1)
  - SKIN CANCER [None]
